FAERS Safety Report 9927915 (Version 2)
Quarter: 2014Q2

REPORT INFORMATION
  Report Type: Spontaneous
  Country: US (occurrence: US)
  Receive Date: 20140227
  Receipt Date: 20140417
  Transmission Date: 20141212
  Serious: No
  Sender: FDA-Public Use
  Company Number: US-PFIZER INC-2014055496

PATIENT
  Age: 65 Year
  Sex: Female

DRUGS (9)
  1. LYRICA [Suspect]
     Dosage: UNK
  2. CELEBREX [Suspect]
     Dosage: UNK
  3. ACTOS [Suspect]
     Dosage: UNK
  4. AMARYL [Suspect]
     Dosage: UNK
  5. ASPIRIN [Suspect]
     Dosage: UNK
  6. AVANDIA [Suspect]
     Dosage: UNK
  7. CRESTOR [Suspect]
     Dosage: UNK
  8. KEPPRA [Suspect]
     Dosage: UNK
  9. PROZAC [Suspect]
     Dosage: UNK

REACTIONS (2)
  - Drug hypersensitivity [Unknown]
  - Nausea [Unknown]
